FAERS Safety Report 9175696 (Version 2)
Quarter: 2013Q2

REPORT INFORMATION
  Report Type: Spontaneous
  Country: SK (occurrence: SK)
  Receive Date: 20130320
  Receipt Date: 20130424
  Transmission Date: 20140414
  Serious: Yes (Death)
  Sender: FDA-Public Use
  Company Number: SK-ROCHE-1203182

PATIENT
  Age: 58 Year
  Sex: Female

DRUGS (9)
  1. HERCEPTIN [Suspect]
     Indication: BREAST CANCER
     Route: 065
     Dates: start: 20100520
  2. XELODA [Suspect]
     Indication: BREAST CANCER
     Route: 065
  3. PEGFILGRASTIM [Suspect]
     Indication: BREAST CANCER
     Route: 065
  4. FILGRASTIM [Suspect]
     Indication: LEUKOPENIA
     Route: 065
  5. PACLITAXEL [Suspect]
     Indication: PRODUCT USED FOR UNKNOWN INDICATION
     Route: 065
  6. LAPATINIB [Suspect]
     Indication: PRODUCT USED FOR UNKNOWN INDICATION
     Route: 065
  7. FLUOROURACIL [Concomitant]
  8. EPIRUBICIN [Concomitant]
  9. CYCLOPHOSPHAMIDE [Concomitant]

REACTIONS (5)
  - Death [Fatal]
  - Deep vein thrombosis [Unknown]
  - Hepatic enzyme increased [Unknown]
  - Palmar-plantar erythrodysaesthesia syndrome [Unknown]
  - Leukopenia [Recovered/Resolved]
